FAERS Safety Report 19271433 (Version 1)
Quarter: 2021Q2

REPORT INFORMATION
  Report Type: Other
  Country: FI (occurrence: FI)
  Receive Date: 20210518
  Receipt Date: 20210518
  Transmission Date: 20210717
  Serious: Yes (Other)
  Sender: FDA-Public Use
  Company Number: FI-ROCHE-2832411

PATIENT

DRUGS (6)
  1. BINIMETINIB [Suspect]
     Active Substance: BINIMETINIB
     Indication: MALIGNANT MELANOMA
     Route: 065
  2. TRAMETINIB [Suspect]
     Active Substance: TRAMETINIB
     Indication: MALIGNANT MELANOMA
     Route: 065
  3. ENCORAFENIB [Suspect]
     Active Substance: ENCORAFENIB
     Indication: MALIGNANT MELANOMA
     Route: 065
  4. VEMURAFENIB. [Suspect]
     Active Substance: VEMURAFENIB
     Indication: MALIGNANT MELANOMA
     Route: 065
  5. DABRAFENIB [Suspect]
     Active Substance: DABRAFENIB
     Indication: MALIGNANT MELANOMA
     Route: 065
  6. COBIMETINIB. [Suspect]
     Active Substance: COBIMETINIB
     Indication: MALIGNANT MELANOMA
     Route: 065

REACTIONS (21)
  - Rash [Unknown]
  - Pyrexia [Unknown]
  - Dry skin [Unknown]
  - Photosensitivity reaction [Unknown]
  - Cardiac failure [Unknown]
  - Fatigue [Unknown]
  - Pulmonary embolism [Unknown]
  - Hepatic enzyme increased [Unknown]
  - Arrhythmia [Unknown]
  - Basal cell carcinoma [Unknown]
  - Hypersensitivity [Unknown]
  - Erythema nodosum [Unknown]
  - Pulmonary fibrosis [Unknown]
  - Squamous cell carcinoma of skin [Unknown]
  - Hyperkeratosis [Unknown]
  - Alopecia [Unknown]
  - Skin papilloma [Unknown]
  - Nausea [Unknown]
  - Diarrhoea [Unknown]
  - Pruritus [Unknown]
  - Constipation [Unknown]
